FAERS Safety Report 14802446 (Version 1)
Quarter: 2018Q2

REPORT INFORMATION
  Report Type: Report from Study
  Country: JP (occurrence: JP)
  Receive Date: 20180424
  Receipt Date: 20180424
  Transmission Date: 20180711
  Serious: Yes (Hospitalization)
  Sender: FDA-Public Use
  Company Number: JP-TAIHO ONCOLOGY INC-JPTT180304

PATIENT
  Age: 69 Year
  Sex: Female
  Weight: 46 kg

DRUGS (3)
  1. AVASTIN [Concomitant]
     Active Substance: BEVACIZUMAB
     Indication: COLORECTAL CANCER RECURRENT
     Dosage: CYCLES 1-9
     Route: 041
     Dates: start: 201710, end: 20180320
  2. LONSURF [Suspect]
     Active Substance: TIPIRACIL HYDROCHLORIDE\TRIFLURIDINE
     Indication: COLORECTAL CANCER RECURRENT
     Dosage: CYCLE 9
     Route: 048
     Dates: start: 20180320, end: 20180325
  3. LONSURF [Suspect]
     Active Substance: TIPIRACIL HYDROCHLORIDE\TRIFLURIDINE
     Indication: COLORECTAL CANCER RECURRENT
     Dosage: 50 MG X 2/DAY; ON DAYS 1-5 OF EACH 14-DAY CYCLE, CYCLES 1-8
     Route: 048
     Dates: start: 201710

REACTIONS (2)
  - Dehydration [Recovered/Resolved]
  - Decreased appetite [Recovered/Resolved]

NARRATIVE: CASE EVENT DATE: 20180403
